FAERS Safety Report 18808897 (Version 1)
Quarter: 2021Q1

REPORT INFORMATION
  Report Type: Other
  Country: CA (occurrence: CA)
  Receive Date: 20210129
  Receipt Date: 20210129
  Transmission Date: 20210419
  Serious: Yes (Hospitalization, Other)
  Sender: FDA-Public Use
  Company Number: CA-ROCHE-1127197

PATIENT
  Age: 36 Year
  Sex: Female
  Weight: 61 kg

DRUGS (11)
  1. PREDNISONE. [Concomitant]
     Active Substance: PREDNISONE
     Dosage: WEANING DOWN NOW
  2. ACETAMINOPHEN. [Concomitant]
     Active Substance: ACETAMINOPHEN
     Indication: PREMEDICATION
     Route: 048
     Dates: start: 20120827
  3. METHYLPREDNISOLONE. [Concomitant]
     Active Substance: METHYLPREDNISOLONE
     Indication: PREMEDICATION
     Route: 042
     Dates: start: 20120827
  4. CELEBREX [Concomitant]
     Active Substance: CELECOXIB
  5. RITUXAN [Suspect]
     Active Substance: RITUXIMAB
     Indication: RHEUMATOID ARTHRITIS
     Dosage: LAST RECEIVED ON 28/APR/2014.?LAST RECEIVED DOSE ON: 22/DEC/2014?MOST RECENT DOSE OF RITUXIMAB: 28/S
     Route: 042
     Dates: start: 20120827
  6. METHOTREXATE. [Suspect]
     Active Substance: METHOTREXATE
     Indication: PRODUCT USED FOR UNKNOWN INDICATION
     Route: 065
  7. SULFASALAZINE. [Concomitant]
     Active Substance: SULFASALAZINE
     Dosage: DOSE REDUCED TO 2MG
  8. FOLIC ACID. [Concomitant]
     Active Substance: FOLIC ACID
  9. TYLENOL ARTHRITIS PAIN [Concomitant]
     Active Substance: ACETAMINOPHEN
  10. ACTONEL [Concomitant]
     Active Substance: RISEDRONATE SODIUM
  11. DIPHENHYDRAMINE HCL [Concomitant]
     Active Substance: DIPHENHYDRAMINE HYDROCHLORIDE
     Indication: PREMEDICATION
     Route: 048
     Dates: start: 20120827

REACTIONS (38)
  - Oral herpes [Not Recovered/Not Resolved]
  - Sinusitis [Not Recovered/Not Resolved]
  - Bone erosion [Not Recovered/Not Resolved]
  - Skin disorder [Unknown]
  - Joint swelling [Not Recovered/Not Resolved]
  - Anxiety [Not Recovered/Not Resolved]
  - Polychondritis [Unknown]
  - Rheumatoid arthritis [Unknown]
  - Ingrown hair [Recovered/Resolved]
  - Blood pressure fluctuation [Unknown]
  - Mucocutaneous leishmaniasis [Unknown]
  - Sarcoidosis [Unknown]
  - Joint destruction [Not Recovered/Not Resolved]
  - Blood pressure diastolic abnormal [Unknown]
  - Nasopharyngitis [Not Recovered/Not Resolved]
  - Musculoskeletal stiffness [Not Recovered/Not Resolved]
  - Fatigue [Unknown]
  - Immunodeficiency [Not Recovered/Not Resolved]
  - Conjunctivitis [Unknown]
  - Impaired healing [Unknown]
  - Hypotension [Unknown]
  - Blood pressure decreased [Unknown]
  - Upper gastrointestinal haemorrhage [Not Recovered/Not Resolved]
  - Nasal herpes [Recovering/Resolving]
  - Headache [Not Recovered/Not Resolved]
  - Skin infection [Not Recovered/Not Resolved]
  - Rhinalgia [Unknown]
  - Stomach mass [Not Recovered/Not Resolved]
  - Granulomatosis with polyangiitis [Unknown]
  - Mobility decreased [Not Recovered/Not Resolved]
  - Ulcer [Recovering/Resolving]
  - Gastrointestinal stromal tumour [Not Recovered/Not Resolved]
  - Infection susceptibility increased [Not Recovered/Not Resolved]
  - Weight decreased [Unknown]
  - Musculoskeletal stiffness [Not Recovered/Not Resolved]
  - Nasal injury [Recovering/Resolving]
  - Pain [Not Recovered/Not Resolved]
  - Peripheral swelling [Not Recovered/Not Resolved]

NARRATIVE: CASE EVENT DATE: 20120910
